FAERS Safety Report 12810260 (Version 1)
Quarter: 2016Q4

REPORT INFORMATION
  Report Type: Spontaneous
  Country: US (occurrence: US)
  Receive Date: 20161005
  Receipt Date: 20161005
  Transmission Date: 20170207
  Serious: No
  Sender: FDA-Public Use
  Company Number: US-BAYER-2016-188430

PATIENT
  Age: 9 Year
  Sex: Female
  Weight: 32.2 kg

DRUGS (1)
  1. MIRALAX [Suspect]
     Active Substance: POLYETHYLENE GLYCOL 3350
     Indication: GASTROINTESTINAL DISORDER
     Dosage: 1 DF, QD
     Route: 048
     Dates: start: 2012, end: 20160916

REACTIONS (6)
  - Abdominal pain [Recovering/Resolving]
  - Irritable bowel syndrome [Recovered/Resolved]
  - Product use issue [Unknown]
  - Feeling abnormal [Recovered/Resolved]
  - Drug ineffective [Unknown]
  - Wrong technique in product usage process [Unknown]

NARRATIVE: CASE EVENT DATE: 2012
